FAERS Safety Report 7565644-7 (Version None)
Quarter: 2011Q2

REPORT INFORMATION
  Report Type: 
  Country: None (occurrence: None)
  Receive Date: 20110623
  Receipt Date: 20110614
  Transmission Date: 20111010
  Serious: Yes (Death, Hospitalization, Other)
  Sender: FDA-Public Use
  Company Number: KR-PAR PHARMACEUTICAL, INC-2011SCPR003074

PATIENT
  Age: 60 Year
  Sex: Male

DRUGS (3)
  1. BORTEZOMIB [Suspect]
     Indication: MULTIPLE MYELOMA
     Dosage: 1.3 MG/M2, FOR DAYS 1, 4, 8, AND 11
     Route: 065
  2. DEXAMETHASONE [Suspect]
     Indication: MULTIPLE MYELOMA
     Dosage: 20 MG/M2 FOR DAYS 1, 4, 8, AND 11
     Route: 065
  3. CYCLOPHOSPHAMIDE [Suspect]
     Indication: MULTIPLE MYELOMA
     Dosage: 150 MG/M2 FOR DAYS 1-4
     Route: 065

REACTIONS (4)
  - PLASMACYTOMA [None]
  - DISEASE PROGRESSION [None]
  - DEATH [None]
  - ASTHENIA [None]
